FAERS Safety Report 8606745-1 (Version None)
Quarter: 2012Q3

REPORT INFORMATION
  Report Type: 
  Country: None (occurrence: None)
  Receive Date: 20120820
  Receipt Date: 20120807
  Transmission Date: 20120928
  Serious: Yes (Life-Threatening)
  Sender: FDA-Public Use
  Company Number: JP-FRI-1000037712

PATIENT
  Sex: Male
  Weight: 54 kg

DRUGS (12)
  1. ZYPREXA [Concomitant]
     Indication: DEPRESSION
     Dosage: 2.5 MG
     Route: 048
     Dates: start: 20120606, end: 20120722
  2. LEXAPRO [Suspect]
     Dosage: 10 MG
     Route: 048
     Dates: start: 20120724, end: 20120726
  3. REMERON [Suspect]
     Indication: DEPRESSION
     Dosage: 45 MG
     Route: 048
     Dates: start: 20120627, end: 20120731
  4. ALPRAZOLAM [Concomitant]
     Indication: DEPRESSION
     Dosage: 0.4 MG
     Route: 048
     Dates: start: 20120627, end: 20120731
  5. GLYCYRON [Concomitant]
     Indication: HEPATIC FUNCTION ABNORMAL
     Route: 048
  6. LEXAPRO [Suspect]
     Indication: DEPRESSION
     Dosage: 10 MG
     Route: 048
     Dates: start: 20120711, end: 20120718
  7. ZYPREXA [Concomitant]
     Dosage: 5 MG
     Route: 048
     Dates: start: 20120723, end: 20120725
  8. LEXAPRO [Suspect]
     Dosage: 20 MG
     Route: 048
     Dates: start: 20120719, end: 20120723
  9. ZYPREXA [Concomitant]
     Dosage: 7.5 MG
     Route: 048
     Dates: start: 20120726, end: 20120729
  10. MEILAX [Concomitant]
     Indication: DEPRESSION
     Dosage: 2 MG
     Route: 048
     Dates: start: 20120705
  11. AMLODIPINE BESYLATE [Concomitant]
     Indication: HYPERTENSION
     Dosage: 5 MG
     Route: 048
  12. ZYPREXA [Concomitant]
     Dosage: 10 MG
     Route: 048
     Dates: start: 20120730

REACTIONS (1)
  - ACTIVATION SYNDROME [None]
